FAERS Safety Report 8202798-3 (Version None)
Quarter: 2012Q1

REPORT INFORMATION
  Report Type: 
  Country: None (occurrence: None)
  Receive Date: 20120312
  Receipt Date: 20120312
  Transmission Date: 20120608
  Serious: Yes (Other)
  Sender: FDA-Public Use
  Company Number: None

PATIENT
  Age: 77 Year
  Sex: Female
  Weight: 52.616 kg

DRUGS (2)
  1. REMICADE [Suspect]
     Indication: COLITIS
     Dosage: INFUSION GIVEN AT CAPE COD HOS
  2. REMICADE [Concomitant]
     Dosage: INFUSION GIVEN AT CAPE COD HOS

REACTIONS (2)
  - RHEUMATOID ARTHRITIS [None]
  - PAIN [None]
